FAERS Safety Report 5695879-X (Version None)
Quarter: 2008Q2

REPORT INFORMATION
  Report Type: 
  Country: None (occurrence: None)
  Receive Date: 20080403
  Receipt Date: 20080403
  Transmission Date: 20081010
  Serious: Yes (Other)
  Sender: FDA-Public Use
  Company Number: None

PATIENT
  Age: 10 Year
  Sex: Female
  Weight: 29.4838 kg

DRUGS (2)
  1. SINGULAIR [Suspect]
     Indication: HYPERSENSITIVITY
     Dosage: 5MIL  DAILY  PO
     Route: 048
     Dates: start: 20080220, end: 20080402
  2. SINGULAIR [Suspect]
     Indication: SINUS CONGESTION
     Dosage: 5MIL  DAILY  PO
     Route: 048
     Dates: start: 20080220, end: 20080402

REACTIONS (3)
  - DEPRESSION [None]
  - IRRITABILITY [None]
  - MOOD SWINGS [None]
